FAERS Safety Report 21190226 (Version 2)
Quarter: 2022Q3

REPORT INFORMATION
  Report Type: Spontaneous
  Country: JP (occurrence: JP)
  Receive Date: 20220809
  Receipt Date: 20220920
  Transmission Date: 20221027
  Serious: Yes (Death, Hospitalization, Other)
  Sender: FDA-Public Use
  Company Number: JP-OTSUKA-2022_039833

PATIENT
  Age: 77 Year

DRUGS (5)
  1. SAMSCA [Suspect]
     Active Substance: TOLVAPTAN
     Indication: Cardiac failure
     Dosage: 7.5 MG/DAY
     Route: 048
     Dates: start: 20220702, end: 20220722
  2. TOLVAPTAN [Suspect]
     Active Substance: TOLVAPTAN
     Indication: Cardiac failure
     Dosage: 8 MG/DAY
     Route: 041
     Dates: start: 20220722, end: 20220804
  3. FUROSEMIDE [Concomitant]
     Active Substance: FUROSEMIDE
     Indication: Cardiac failure
     Dosage: 20 MG/DAY
     Route: 042
     Dates: start: 20220722
  4. SPIRONOLACTONE [Concomitant]
     Active Substance: SPIRONOLACTONE
     Indication: Cardiac failure
     Dosage: 25 MG/DAY
     Route: 048
  5. FUROSEMIDE [Concomitant]
     Active Substance: FUROSEMIDE
     Indication: Cardiac failure
     Dosage: 20 MG/DAY
     Route: 048
     Dates: end: 202207

REACTIONS (1)
  - Pneumonia [Fatal]

NARRATIVE: CASE EVENT DATE: 20220701
